FAERS Safety Report 6378415-4 (Version None)
Quarter: 2009Q3

REPORT INFORMATION
  Report Type: 
  Country: None (occurrence: None)
  Receive Date: 20090925
  Receipt Date: 20090727
  Transmission Date: 20100115
  Serious: Yes (Hospitalization)
  Sender: FDA-Public Use
  Company Number: US-ASTRAZENECA-2007UW03790

PATIENT
  Age: 19750 Day
  Sex: Male
  Weight: 108.9 kg

DRUGS (3)
  1. SEROQUEL [Suspect]
     Indication: SCHIZOPHRENIA
     Route: 048
     Dates: start: 19970101, end: 20060701
  2. ABILIFY [Concomitant]
     Dates: start: 20060101
  3. HALDOL [Concomitant]

REACTIONS (2)
  - PARKINSON'S DISEASE [None]
  - TYPE 2 DIABETES MELLITUS [None]
